FAERS Safety Report 4652868-1 (Version None)
Quarter: 2005Q2

REPORT INFORMATION
  Report Type: 
  Country: None (occurrence: None)
  Receive Date: 20050502
  Receipt Date: 20050414
  Transmission Date: 20051028
  Serious: Yes (Hospitalization)
  Sender: FDA-Public Use
  Company Number: 2005PK00665

PATIENT
  Age: 35 Year
  Sex: Male
  Weight: 150 kg

DRUGS (3)
  1. SEROQUEL [Suspect]
     Indication: SCHIZOPHRENIA
     Dosage: 950 MG DAILY, PO
     Route: 048
  2. LASIX [Suspect]
     Indication: OEDEMA PERIPHERAL
  3. HALOPERIDOL [Suspect]
     Dosage: 1.3 ML DAILY

REACTIONS (9)
  - CONDITION AGGRAVATED [None]
  - DRUG INTERACTION [None]
  - HALLUCINATION [None]
  - HALLUCINATION, AUDITORY [None]
  - METABOLIC SYNDROME [None]
  - OEDEMA PERIPHERAL [None]
  - PSYCHOTIC DISORDER [None]
  - SCHIZOPHRENIA [None]
  - WEIGHT INCREASED [None]
